FAERS Safety Report 6707252-3 (Version None)
Quarter: 2010Q2

REPORT INFORMATION
  Report Type: 
  Country: None (occurrence: None)
  Receive Date: 20100503
  Receipt Date: 20090720
  Transmission Date: 20101027
  Serious: No
  Sender: FDA-Public Use
  Company Number: US-ASTRAZENECA-2009SE05862

PATIENT
  Sex: Female

DRUGS (5)
  1. NEXIUM [Suspect]
     Indication: PEPTIC ULCER
     Route: 048
  2. CLONOPIN [Concomitant]
  3. DIOVAN [Concomitant]
  4. COREG [Concomitant]
  5. BUSPAR [Concomitant]

REACTIONS (5)
  - ANXIETY [None]
  - BILE OUTPUT ABNORMAL [None]
  - DYSPEPSIA [None]
  - LIVER DISORDER [None]
  - THERAPEUTIC RESPONSE UNEXPECTED [None]
